FAERS Safety Report 22010008 (Version 1)
Quarter: 2023Q1

REPORT INFORMATION
  Report Type: Report from Study
  Country: US (occurrence: US)
  Receive Date: 20230220
  Receipt Date: 20230220
  Transmission Date: 20230418
  Serious: Yes (Hospitalization)
  Sender: FDA-Public Use
  Company Number: US-ARGENX-2022-ARGX-US002085

PATIENT

DRUGS (3)
  1. VYVGART [Suspect]
     Active Substance: EFGARTIGIMOD ALFA-FCAB
     Indication: Myasthenia gravis
     Dosage: UNK
  2. PREDNISONE [Concomitant]
     Active Substance: PREDNISONE
     Indication: Myasthenia gravis
  3. INSULIN NOS [Concomitant]
     Active Substance: INSULIN NOS
     Indication: Diabetes mellitus

REACTIONS (9)
  - Influenza [Recovering/Resolving]
  - Diabetes mellitus [Recovering/Resolving]
  - Myasthenia gravis [Recovering/Resolving]
  - Upper respiratory tract infection [Unknown]
  - Catheter site haemorrhage [Unknown]
  - Sciatica [Recovering/Resolving]
  - Walking aid user [Recovering/Resolving]
  - Thrombosis [Unknown]
  - Neuralgia [Unknown]

NARRATIVE: CASE EVENT DATE: 20221231
